FAERS Safety Report 9208146 (Version 1)
Quarter: 2013Q2

REPORT INFORMATION
  Report Type: Report from Study
  Country: FR (occurrence: FR)
  Receive Date: 20130403
  Receipt Date: 20130403
  Transmission Date: 20140414
  Serious: Yes (Hospitalization)
  Sender: FDA-Public Use
  Company Number: PHHY2013FR031763

PATIENT
  Sex: Male

DRUGS (6)
  1. MYCOPHENOLATE MOFETIL [Suspect]
     Indication: RENAL TRANSPLANT
     Dosage: 3 G, UNK
     Route: 048
  2. MYCOPHENOLATE MOFETIL [Suspect]
     Dosage: 500 MG, UNK
     Route: 048
     Dates: start: 20121013
  3. PREDNISOLONE [Suspect]
     Indication: RENAL TRANSPLANT
     Dosage: 5 MG, UNK
     Route: 048
     Dates: start: 20121013
  4. EVEROLIMUS [Suspect]
     Indication: RENAL TRANSPLANT
     Dosage: 1 G, UNK
     Route: 048
     Dates: start: 20121203
  5. SULFAMETHOXAZOLE W/TRIMETHOPRIM [Concomitant]
  6. ROVALCYTE [Concomitant]

REACTIONS (2)
  - Leukopenia [Unknown]
  - Kidney transplant rejection [Recovering/Resolving]
